FAERS Safety Report 4587990-1 (Version None)
Quarter: 2005Q1

REPORT INFORMATION
  Report Type: 
  Country: None (occurrence: None)
  Receive Date: 20050215
  Receipt Date: 20050201
  Transmission Date: 20050727
  Serious: Yes (Hospitalization)
  Sender: FDA-Public Use
  Company Number: 2004BI001626

PATIENT
  Age: 61 Year
  Sex: Female

DRUGS (8)
  1. AVONEX [Suspect]
     Indication: MULTIPLE SCLEROSIS
     Dosage: 30 UG;QW;IM
     Route: 042
     Dates: start: 20041202, end: 20041209
  2. BACLOFEN [Concomitant]
  3. PAXIL [Concomitant]
  4. LANOXIN [Concomitant]
  5. LASIX [Concomitant]
  6. NEURONTIN [Concomitant]
  7. LISINOPRIL [Concomitant]
  8. CARTIA XT [Concomitant]

REACTIONS (3)
  - ADVERSE DRUG REACTION [None]
  - DRUG HYPERSENSITIVITY [None]
  - RHABDOMYOLYSIS [None]
